FAERS Safety Report 7314330-7 (Version None)
Quarter: 2011Q1

REPORT INFORMATION
  Report Type: 
  Country: None (occurrence: None)
  Receive Date: 20110225
  Receipt Date: 20100722
  Transmission Date: 20110831
  Serious: No
  Sender: FDA-Public Use
  Company Number: US-MYLANLABS-2010S1013265

PATIENT
  Sex: Male

DRUGS (3)
  1. AMNESTEEM [Suspect]
     Indication: ACNE
     Route: 048
     Dates: start: 20100326, end: 20100714
  2. AMNESTEEM [Suspect]
     Route: 048
     Dates: start: 20100326, end: 20100714
  3. BACTROBAN [Concomitant]
     Route: 061

REACTIONS (2)
  - FURUNCLE [None]
  - ACNE [None]
